FAERS Safety Report 24285087 (Version 1)
Quarter: 2024Q3

REPORT INFORMATION
  Report Type: Spontaneous
  Country: US (occurrence: None)
  Receive Date: 20240901
  Receipt Date: 20240901
  Transmission Date: 20241016
  Serious: No
  Sender: Public
  Company Number: None

PATIENT
  Sex: Female

DRUGS (1)
  1. TERIPARATIDE ACETATE [Suspect]
     Active Substance: TERIPARATIDE ACETATE
     Indication: Osteoporosis
     Dosage: 20MCG DAILY SUB Q
     Route: 058
     Dates: start: 20240811, end: 20240815

REACTIONS (5)
  - Migraine [None]
  - Vomiting [None]
  - Nausea [None]
  - Palpitations [None]
  - Dry eye [None]

NARRATIVE: CASE EVENT DATE: 20240811
